FAERS Safety Report 8161410-2 (Version None)
Quarter: 2012Q1

REPORT INFORMATION
  Report Type: 
  Country: None (occurrence: None)
  Receive Date: 20120222
  Receipt Date: 20120222
  Transmission Date: 20120608
  Serious: Yes (Hospitalization, Other)
  Sender: FDA-Public Use
  Company Number: None

PATIENT
  Age: 69 Year
  Sex: Male
  Weight: 76.2 kg

DRUGS (1)
  1. NOREPINEPHRINE BITARTRATE [Suspect]
     Dosage: 10 MCG PER HOUR IV
     Route: 042
     Dates: start: 20120113, end: 20120114

REACTIONS (4)
  - POOR PERIPHERAL CIRCULATION [None]
  - INJECTION SITE NECROSIS [None]
  - URINE OUTPUT DECREASED [None]
  - INJECTION SITE EXFOLIATION [None]
